FAERS Safety Report 9162840 (Version 1)
Quarter: 2013Q1

REPORT INFORMATION
  Report Type: Spontaneous
  Country: US (occurrence: US)
  Receive Date: 20130314
  Receipt Date: 20130314
  Transmission Date: 20140127
  Serious: Yes (Other)
  Sender: FDA-Public Use
  Company Number: PHEH2013US005813

PATIENT
  Sex: Female

DRUGS (3)
  1. CARBAMAZEPINE [Suspect]
     Dosage: UNK UKN, UNK
  2. LORAZEPAM [Concomitant]
     Dosage: UNK UKN, UNK
  3. LEVETIRACETAM [Concomitant]
     Dosage: UNK UKN, UNK

REACTIONS (4)
  - Convulsion [Unknown]
  - Rash generalised [Unknown]
  - Drug intolerance [Unknown]
  - Insomnia [Unknown]
